FAERS Safety Report 7371578-3 (Version None)
Quarter: 2011Q1

REPORT INFORMATION
  Report Type: 
  Country: None (occurrence: None)
  Receive Date: 20110324
  Receipt Date: 20110314
  Transmission Date: 20110831
  Serious: Yes (Other)
  Sender: FDA-Public Use
  Company Number: US-SANOFI-AVENTIS-2011SA016075

PATIENT
  Sex: Female

DRUGS (10)
  1. ASPIRIN [Concomitant]
  2. METOPROLOL [Concomitant]
  3. VITAMIN D [Concomitant]
  4. NAPROXEN [Concomitant]
     Indication: BACK PAIN
     Dosage: 500MG BID
  5. PLAVIX [Suspect]
     Indication: STENT PLACEMENT
     Route: 048
     Dates: start: 20101201, end: 20110313
  6. ASPIRIN [Concomitant]
     Dates: start: 20110301
  7. NIACIN [Concomitant]
     Dosage: 1000/20MG DAILY
  8. SIMVASTATIN [Concomitant]
     Dosage: 1000/20MG DAILY
  9. LOVAZA [Concomitant]
     Dosage: 4MG DAILY
  10. OMEPRAZOLE [Concomitant]

REACTIONS (14)
  - LACERATION [None]
  - CHEST DISCOMFORT [None]
  - MEMORY IMPAIRMENT [None]
  - MUSCULAR WEAKNESS [None]
  - CONTUSION [None]
  - CONDITION AGGRAVATED [None]
  - FALL [None]
  - LIMB INJURY [None]
  - PAIN IN EXTREMITY [None]
  - BACK PAIN [None]
  - FATIGUE [None]
  - DYSPNOEA [None]
  - ARTHRALGIA [None]
  - CONFUSIONAL STATE [None]
